FAERS Safety Report 14007651 (Version 1)
Quarter: 2017Q3

REPORT INFORMATION
  Report Type: Report from Study
  Country: AU (occurrence: AU)
  Receive Date: 20170925
  Receipt Date: 20170925
  Transmission Date: 20171128
  Serious: Yes (Other)
  Sender: FDA-Public Use
  Company Number: AU-REGENERON PHARMACEUTICALS, INC.-2017-22699

PATIENT

DRUGS (1)
  1. EYLEA [Suspect]
     Active Substance: AFLIBERCEPT
     Indication: DIABETIC RETINAL OEDEMA
     Dosage: LEFT EYE, DOSE, FREQUENCY AND TOTAL NUMBER OF INJECTIONS WERE NOT REPORTED

REACTIONS (8)
  - Stress [Unknown]
  - Retinal oedema [Unknown]
  - Injection site discomfort [Unknown]
  - Blood glucose increased [Unknown]
  - Eye haemorrhage [Unknown]
  - Visual impairment [Unknown]
  - Vision blurred [Unknown]
  - Off label use [Unknown]
